FAERS Safety Report 11940767 (Version 3)
Quarter: 2016Q2

REPORT INFORMATION
  Report Type: Report from Study
  Country: FR (occurrence: FR)
  Receive Date: 20160122
  Receipt Date: 20160615
  Transmission Date: 20160815
  Serious: Yes (Hospitalization)
  Sender: FDA-Public Use
  Company Number: FR-JNJFOC-20160105216

PATIENT
  Age: 73 Year
  Sex: Female
  Weight: 62 kg

DRUGS (9)
  1. QUESTRAN [Concomitant]
     Active Substance: CHOLESTYRAMINE
     Dates: start: 1996
  2. INEXIUM [Concomitant]
     Active Substance: ESOMEPRAZOLE
     Dates: start: 201501
  3. NISIS [Concomitant]
     Active Substance: VALSARTAN
     Dates: start: 201401
  4. VALSARTAN. [Concomitant]
     Active Substance: VALSARTAN
     Indication: HYPERTENSION
  5. LYSANXIA [Concomitant]
     Active Substance: PRAZEPAM
  6. TRIMEBUTINE [Concomitant]
     Active Substance: TRIMEBUTINE
     Dates: start: 1996
  7. TRABECTEDIN [Suspect]
     Active Substance: TRABECTEDIN
     Indication: SOFT TISSUE SARCOMA
     Dosage: CYCLES 1 AND 2
     Route: 042
     Dates: start: 20150930
  8. TRABECTEDIN [Suspect]
     Active Substance: TRABECTEDIN
     Indication: SOFT TISSUE SARCOMA
     Dosage: CYCLE 3
     Route: 042
     Dates: start: 20151130
  9. INNOHEP [Concomitant]
     Active Substance: TINZAPARIN SODIUM
     Indication: DEEP VEIN THROMBOSIS
     Dates: start: 201407

REACTIONS (3)
  - Pericardial effusion [Recovered/Resolved]
  - Atrial fibrillation [Recovered/Resolved]
  - Ejection fraction decreased [Recovered/Resolved]

NARRATIVE: CASE EVENT DATE: 201511
